FAERS Safety Report 7879769-X (Version None)
Quarter: 2011Q4

REPORT INFORMATION
  Report Type: 
  Country: None (occurrence: None)
  Receive Date: 20111101
  Receipt Date: 20111020
  Transmission Date: 20120403
  Serious: Yes (Hospitalization, Other)
  Sender: FDA-Public Use
  Company Number: IT-ELI_LILLY_AND_COMPANY-IT201110005478

PATIENT
  Sex: Female

DRUGS (5)
  1. PANTOPRAZOLE [Concomitant]
     Dosage: 20 MG, UNK
  2. HUMALOG [Suspect]
     Dosage: 16 IU, QD
     Route: 058
     Dates: start: 20100821, end: 20110820
  3. AMLODIPINE BESYLATE [Concomitant]
     Dosage: 24 IU, QD
     Route: 058
     Dates: start: 20100821, end: 20110820
  4. METFORMIN HCL [Concomitant]
     Dosage: 1 G, QD
     Route: 048
     Dates: start: 20100821, end: 20110820
  5. PREGABALIN [Concomitant]

REACTIONS (1)
  - HYPOGLYCAEMIC COMA [None]
